FAERS Safety Report 16789746 (Version 1)
Quarter: 2019Q3

REPORT INFORMATION
  Report Type: Spontaneous
  Country: CA (occurrence: CA)
  Receive Date: 20190910
  Receipt Date: 20190910
  Transmission Date: 20191005
  Serious: Yes (Other)
  Sender: FDA-Public Use
  Company Number: CA-MYLANLABS-2019M1082909

PATIENT
  Sex: Female
  Weight: 67 kg

DRUGS (1)
  1. MYLAN-PROPAFENONE [Suspect]
     Active Substance: PROPAFENONE
     Indication: PRODUCT USED FOR UNKNOWN INDICATION
     Dosage: UNK
     Route: 048

REACTIONS (2)
  - Heart rate irregular [Unknown]
  - Drug ineffective [Recovered/Resolved]
